FAERS Safety Report 7259775-9 (Version None)
Quarter: 2011Q1

REPORT INFORMATION
  Report Type: 
  Country: None (occurrence: None)
  Receive Date: 20110130
  Receipt Date: 20100902
  Transmission Date: 20110831
  Serious: No
  Sender: FDA-Public Use
  Company Number: US-ABBOTT-10P-163-0668842-00

PATIENT
  Age: 36 Year
  Sex: Female

DRUGS (4)
  1. ESTRADIOL [Concomitant]
     Indication: OVARIAN DISORDER
     Dosage: SKIN PATCH
  2. ZOLOFT [Concomitant]
     Indication: DEPRESSION
     Route: 048
  3. HUMIRA [Suspect]
     Indication: HIDRADENITIS
     Route: 058
     Dates: start: 20100802
  4. LOPRESSOR [Concomitant]
     Indication: HYPERTENSION
     Route: 048

REACTIONS (1)
  - DIARRHOEA [None]
